FAERS Safety Report 10046527 (Version 1)
Quarter: 2014Q1

REPORT INFORMATION
  Report Type: Spontaneous
  Country: US (occurrence: US)
  Receive Date: 20140331
  Receipt Date: 20140331
  Transmission Date: 20141002
  Serious: No
  Sender: FDA-Public Use
  Company Number: US-BIOGENIDEC-2014BI028076

PATIENT
  Age: 59 Year
  Sex: Female

DRUGS (17)
  1. TECFIDERA [Suspect]
     Indication: MULTIPLE SCLEROSIS
     Route: 048
     Dates: start: 201308
  2. GABAPENTIN [Concomitant]
  3. ACTOPLUS [Concomitant]
  4. ALTACE [Concomitant]
  5. AMANTADINE [Concomitant]
  6. OMEPRAZOLE [Concomitant]
  7. FUROSEMIDE [Concomitant]
  8. SYNTHROID [Concomitant]
  9. METRONIDAZOLE [Concomitant]
  10. VYTORIN [Concomitant]
  11. FISH  OIL [Concomitant]
  12. CALCIUM [Concomitant]
  13. VITAMIN B6 [Concomitant]
  14. VITAMIN C [Concomitant]
  15. VITAMIN D [Concomitant]
  16. VITAMIN E [Concomitant]
  17. LO-DOSE ASPIRIN [Concomitant]

REACTIONS (2)
  - Flatulence [Not Recovered/Not Resolved]
  - Gastroenteritis viral [Recovered/Resolved]
